FAERS Safety Report 5349645-5 (Version None)
Quarter: 2007Q2

REPORT INFORMATION
  Report Type: 
  Country: None (occurrence: None)
  Receive Date: 20070607
  Receipt Date: 20070604
  Transmission Date: 20071010
  Serious: Yes (Hospitalization)
  Sender: FDA-Public Use
  Company Number: GR-BRISTOL-MYERS SQUIBB COMPANY-13803515

PATIENT
  Age: 66 Year
  Sex: Female

DRUGS (2)
  1. IRBESARTAN [Suspect]
     Dates: end: 20070101
  2. GLICLAZIDE [Concomitant]
     Dates: end: 20070101

REACTIONS (2)
  - BLOOD CREATININE INCREASED [None]
  - BLOOD GLUCOSE INCREASED [None]
